FAERS Safety Report 9174013 (Version 1)
Quarter: 2013Q1

REPORT INFORMATION
  Report Type: Spontaneous
  Country: US (occurrence: US)
  Receive Date: 20130320
  Receipt Date: 20130320
  Transmission Date: 20140127
  Serious: No
  Sender: FDA-Public Use
  Company Number: US-PFIZER INC-2013090775

PATIENT
  Sex: Female

DRUGS (1)
  1. XANAX [Suspect]
     Indication: CONVULSION
     Dosage: UNK

REACTIONS (3)
  - Somnolence [Unknown]
  - Feeling abnormal [Unknown]
  - Off label use [Unknown]
